FAERS Safety Report 4320272-1 (Version None)
Quarter: 2004Q1

REPORT INFORMATION
  Report Type: 
  Country: None (occurrence: None)
  Receive Date: 20040317
  Receipt Date: 20040310
  Transmission Date: 20041129
  Serious: Yes (Life-Threatening, Hospitalization, Disabling)
  Sender: FDA-Public Use
  Company Number: 2004CG00513

PATIENT
  Age: 49 Year
  Sex: Female
  Weight: 63 kg

DRUGS (3)
  1. IRESSA [Suspect]
     Indication: OVARIAN CANCER
     Dosage: 500 MG DAILY PO
     Route: 048
     Dates: start: 20040304, end: 20040308
  2. TAXOL [Suspect]
     Indication: OVARIAN CANCER
     Dosage: 295 MG Q3WK IV
     Route: 042
     Dates: start: 20040303
  3. PARAPLATIN [Suspect]
     Indication: OVARIAN CANCER
     Dosage: 625 MG Q3WK IV
     Route: 042
     Dates: start: 20040303

REACTIONS (12)
  - APLASIA [None]
  - COAGULOPATHY [None]
  - COLITIS [None]
  - COLONIC OBSTRUCTION [None]
  - KAOLIN CEPHALIN CLOTTING TIME PROLONGED [None]
  - NODULE [None]
  - PERITONEAL CARCINOMA [None]
  - PYREXIA [None]
  - SEPTIC SHOCK [None]
  - TACHYCARDIA [None]
  - TOXIC DILATATION OF COLON [None]
  - WHITE BLOOD CELL COUNT DECREASED [None]
